FAERS Safety Report 7160555-3 (Version None)
Quarter: 2010Q4

REPORT INFORMATION
  Report Type: 
  Country: None (occurrence: None)
  Receive Date: 20101214
  Receipt Date: 20100113
  Transmission Date: 20110411
  Serious: No
  Sender: FDA-Public Use
  Company Number: US-AMGEN-KDL379855

PATIENT

DRUGS (10)
  1. ENBREL [Suspect]
     Indication: PRODUCT USED FOR UNKNOWN INDICATION
     Dosage: 50 MG, QWK
     Route: 058
  2. LORAZEPAM [Concomitant]
  3. ATENOLOL [Concomitant]
  4. ASCORBIC ACID [Concomitant]
  5. GINSENG [Concomitant]
  6. S-ADENOSYLMETHIONINE [Concomitant]
  7. NAPROXEN SODIUM [Concomitant]
  8. MULTI-VITAMINS [Concomitant]
  9. COENZYME Q10 [Concomitant]
  10. GINGKO BILOBA [Concomitant]

REACTIONS (4)
  - COUGH [None]
  - HEADACHE [None]
  - PARANASAL SINUS HYPERSECRETION [None]
  - VISION BLURRED [None]
